FAERS Safety Report 13848946 (Version 1)
Quarter: 2017Q3

REPORT INFORMATION
  Report Type: Spontaneous
  Country: US (occurrence: US)
  Receive Date: 20170809
  Receipt Date: 20170809
  Transmission Date: 20171127
  Serious: Yes (Other)
  Sender: FDA-Public Use
  Company Number: None

PATIENT
  Age: 76 Year
  Sex: Female
  Weight: 79.45 kg

DRUGS (1)
  1. LORATADINE 10MG [Suspect]
     Active Substance: LORATADINE
     Indication: MULTIPLE ALLERGIES
     Route: 048
     Dates: start: 20150515

REACTIONS (2)
  - Product label issue [None]
  - Product name confusion [None]

NARRATIVE: CASE EVENT DATE: 20170515
